FAERS Safety Report 5566414-1 (Version None)
Quarter: 2007Q4

REPORT INFORMATION
  Report Type: 
  Country: None (occurrence: None)
  Receive Date: 20071217
  Receipt Date: 20071217
  Transmission Date: 20080405
  Serious: No
  Sender: FDA-Public Use
  Company Number: None

PATIENT
  Sex: Male
  Weight: 85.68 kg

DRUGS (5)
  1. CYCLOPHOSPHAMIDE [Suspect]
     Dosage: 1120 MG
  2. DOXIL [Suspect]
     Dosage: 80 MG
  3. PREDNISONE [Suspect]
     Dosage: 100 MG
  4. RITUXIMAB (MOAB C2B8 ANTI CD20, CHIMERIC) [Suspect]
     Dosage: 745 MG
  5. VINCRISTINE SULFATE [Suspect]

REACTIONS (1)
  - NEUTROPENIA [None]
